FAERS Safety Report 7916024-3 (Version None)
Quarter: 2011Q4

REPORT INFORMATION
  Report Type: 
  Country: None (occurrence: None)
  Receive Date: 20111115
  Receipt Date: 20111103
  Transmission Date: 20120403
  Serious: Yes (Other)
  Sender: FDA-Public Use
  Company Number: US-ELI_LILLY_AND_COMPANY-US201111004006

PATIENT
  Sex: Female

DRUGS (1)
  1. FORTEO [Suspect]
     Indication: OSTEOPOROSIS
     Dosage: UNK, UNKNOWN

REACTIONS (8)
  - SPEECH DISORDER [None]
  - DYSSTASIA [None]
  - TOOTH LOSS [None]
  - PAIN IN EXTREMITY [None]
  - PAIN [None]
  - CRYING [None]
  - SUICIDAL IDEATION [None]
  - FALL [None]
